FAERS Safety Report 19239837 (Version 1)
Quarter: 2021Q2

REPORT INFORMATION
  Report Type: Spontaneous
  Country: JP (occurrence: JP)
  Receive Date: 20210511
  Receipt Date: 20210511
  Transmission Date: 20210717
  Serious: Yes (Other)
  Sender: FDA-Public Use
  Company Number: JP-LUPIN PHARMACEUTICALS INC.-2021-06482

PATIENT
  Age: 24 Year
  Sex: Male
  Weight: 48 kg

DRUGS (4)
  1. CLOBAZAM. [Suspect]
     Active Substance: CLOBAZAM
     Indication: GENERALISED TONIC-CLONIC SEIZURE
     Dosage: UNK, MAXIMUM DOSAGE: 7 MG/DAY
     Route: 065
  2. DIAZEPAM. [Concomitant]
     Active Substance: DIAZEPAM
     Indication: GENERALISED TONIC-CLONIC SEIZURE
     Dosage: 10 MILLIGRAM, QD, MAXIMUM DOAGES: 10 MG/DAY
     Route: 065
  3. VITAMIN B1 [Concomitant]
     Active Substance: THIAMINE HYDROCHLORIDE
     Indication: MITOCHONDRIAL ENCEPHALOMYOPATHY
     Dosage: UNK
     Route: 065
  4. LEVETIRACETAM. [Concomitant]
     Active Substance: LEVETIRACETAM
     Indication: GENERALISED TONIC-CLONIC SEIZURE
     Dosage: MAXIMUM DOSAGE: 1500 MG/DAY
     Route: 042

REACTIONS (1)
  - Drug ineffective [Unknown]
